FAERS Safety Report 10257741 (Version 1)
Quarter: 2014Q2

REPORT INFORMATION
  Report Type: Spontaneous
  Country: GB (occurrence: None)
  Receive Date: 20140620
  Receipt Date: 20140620
  Transmission Date: 20141212
  Serious: Yes (Life-Threatening, Hospitalization, Other)
  Sender: FDA-Public Use
  Company Number: 2395465

PATIENT
  Age: 17 Year
  Sex: Male
  Weight: 50.4 kg

DRUGS (11)
  1. PAMIDRONIC ACID [Suspect]
     Indication: OSTEOPENIA
     Route: 042
     Dates: start: 20140120, end: 20140121
  2. TIZANIDINE [Concomitant]
  3. BACLOFEN [Concomitant]
  4. SENNA [Concomitant]
  5. SALBUTAMOL [Concomitant]
  6. OMEPRAZOLE [Concomitant]
  7. ALIMEMAZINE [Concomitant]
  8. DOMPERIDONE [Concomitant]
  9. DIASEPAM [Concomitant]
  10. MACROGOL [Concomitant]
  11. SALINE [Concomitant]

REACTIONS (1)
  - Gastric perforation [None]
